FAERS Safety Report 24059947 (Version 1)
Quarter: 2024Q3

REPORT INFORMATION
  Report Type: Spontaneous
  Country: US (occurrence: None)
  Receive Date: 20240704
  Receipt Date: 20240704
  Transmission Date: 20241017
  Serious: Yes (Disabling)
  Sender: Public
  Company Number: None

PATIENT
  Age: 79 Year
  Sex: Male
  Weight: 90 kg

DRUGS (1)
  1. MOVANTIK [Suspect]
     Active Substance: NALOXEGOL OXALATE
     Indication: Constipation
     Dosage: OTHER QUANTITY : 1 TABLET(S);?FREQUENCY : DAILY;?
     Route: 048
     Dates: start: 20240703, end: 20240704

REACTIONS (8)
  - Product substitution issue [None]
  - Hyperhidrosis [None]
  - Headache [None]
  - Chills [None]
  - Nausea [None]
  - Pain [None]
  - Asthenia [None]
  - Bedridden [None]

NARRATIVE: CASE EVENT DATE: 20240703
